FAERS Safety Report 10343812 (Version 1)
Quarter: 2014Q3

REPORT INFORMATION
  Report Type: Spontaneous
  Country: US (occurrence: None)
  Receive Date: 20140725
  Receipt Date: 20140725
  Transmission Date: 20150326
  Serious: No
  Sender: FDA-Public Use
  Company Number: None

PATIENT
  Age: 11 Year
  Sex: Female
  Weight: 35.1 kg

DRUGS (2)
  1. CYTARABINE. [Suspect]
     Active Substance: CYTARABINE
     Dates: end: 20140621
  2. MITOXANTRONE HYDROCHLORIDE. [Suspect]
     Active Substance: MITOXANTRONE HYDROCHLORIDE
     Dates: end: 20140623

REACTIONS (10)
  - Septic shock [None]
  - Confusional state [None]
  - Febrile neutropenia [None]
  - Agitation [None]
  - Blood lactic acid increased [None]
  - Pulmonary haemorrhage [None]
  - Multi-organ failure [None]
  - Streptococcal bacteraemia [None]
  - Cardiac disorder [None]
  - Respiratory distress [None]

NARRATIVE: CASE EVENT DATE: 20140702
